FAERS Safety Report 24281563 (Version 1)
Quarter: 2024Q3

REPORT INFORMATION
  Report Type: Spontaneous
  Country: US (occurrence: None)
  Receive Date: 20240901
  Receipt Date: 20240901
  Transmission Date: 20241016
  Serious: Yes (Life-Threatening, Disabling, Other)
  Sender: Public
  Company Number: None

PATIENT
  Age: 31 Year
  Sex: Male
  Weight: 51.75 kg

DRUGS (1)
  1. SUBLOCADE [Suspect]
     Active Substance: BUPRENORPHINE
     Indication: Drug dependence
     Dosage: ONCE A MONTH SUBCUTANEOUS
     Route: 058

REACTIONS (10)
  - Wrong technique in product usage process [None]
  - Incorrect route of product administration [None]
  - Vascular occlusion [None]
  - Pain [None]
  - Headache [None]
  - Dizziness [None]
  - Confusional state [None]
  - Tremor [None]
  - Infection [None]
  - Ultrasound scan abnormal [None]

NARRATIVE: CASE EVENT DATE: 20240808
